FAERS Safety Report 8601705-9 (Version None)
Quarter: 2012Q3

REPORT INFORMATION
  Report Type: 
  Country: None (occurrence: None)
  Receive Date: 20120817
  Receipt Date: 20120314
  Transmission Date: 20120928
  Serious: No
  Sender: FDA-Public Use
  Company Number: US-BRISTOL-MYERS SQUIBB COMPANY-16369944

PATIENT
  Age: 53 Year
  Sex: Female
  Weight: 92 kg

DRUGS (1)
  1. SPRYCEL [Suspect]
     Indication: CHRONIC MYELOID LEUKAEMIA
     Dosage: STARTED 3 MONTHS AGO
     Route: 048
     Dates: start: 20111026

REACTIONS (3)
  - PAIN [None]
  - PYREXIA [None]
  - TEMPOROMANDIBULAR JOINT SYNDROME [None]
